FAERS Safety Report 8068382 (Version 3)
Quarter: 2014Q2

REPORT INFORMATION
  Report Type: Report from Study
  Country: US (occurrence: US)
  Receive Date: 20110804
  Receipt Date: 20140515
  Transmission Date: 20141212
  Serious: Yes (Hospitalization)
  Sender: FDA-Public Use
  Company Number: US-JNJFOC-20110800559

PATIENT
  Age: 67 Year
  Sex: Female
  Weight: 144.24 kg

DRUGS (24)
  1. STELARA [Suspect]
     Indication: PSORIASIS
     Dosage: PATIENT RECEIVED 16 INJECTIONS
     Route: 058
     Dates: start: 20110322
  2. COREG [Suspect]
     Indication: PRODUCT USED FOR UNKNOWN INDICATION
     Route: 048
  3. ASPIRIN [Concomitant]
     Route: 048
  4. BUMETANIDE [Concomitant]
     Route: 065
  5. CLINDAMYCIN [Concomitant]
     Route: 065
  6. CLOTRIMAZOLE [Concomitant]
     Route: 065
  7. CYCLOBENZAPRIN HYDROCHLORIDE [Concomitant]
     Route: 065
  8. DILTIAZEM [Concomitant]
     Route: 065
  9. FISH OIL [Concomitant]
     Route: 065
  10. FLECAINIDE [Concomitant]
     Route: 065
  11. FOLIC ACID [Concomitant]
     Route: 065
  12. HYDROCODONE [Concomitant]
     Route: 065
  13. HYDROXYZINE HYDROCHLORIDE [Concomitant]
     Route: 065
  14. HYDROXYZINE PAMOATE [Concomitant]
     Route: 065
  15. KLOR-CON [Concomitant]
     Route: 065
  16. METHOTREXATE [Concomitant]
     Route: 065
  17. PRAVACHOL [Concomitant]
     Route: 065
  18. SYNTHROID [Concomitant]
     Route: 065
  19. VITAMIN D [Concomitant]
     Route: 065
  20. XALATAN [Concomitant]
     Route: 065
  21. TACLONEX [Concomitant]
     Route: 065
  22. TIMOLOL [Concomitant]
     Route: 065
  23. TYLENOL ARTHRITIS [Concomitant]
     Route: 065
  24. PRADAXA [Concomitant]
     Route: 065

REACTIONS (2)
  - Cardiac failure congestive [Recovered/Resolved]
  - Pulmonary oedema [Recovered/Resolved]
